FAERS Safety Report 22172154 (Version 1)
Quarter: 2023Q2

REPORT INFORMATION
  Report Type: Spontaneous
  Country: US (occurrence: US)
  Receive Date: 20230404
  Receipt Date: 20230404
  Transmission Date: 20230721
  Serious: Yes (Hospitalization)
  Sender: FDA-Public Use
  Company Number: US-INCYTE CORPORATION-2023IN003264

PATIENT

DRUGS (2)
  1. JAKAFI [Suspect]
     Active Substance: RUXOLITINIB
     Indication: Myelofibrosis
     Dosage: 20 MILLIGRAM, BID
     Route: 048
  2. FERROUS SULFATE [Concomitant]
     Active Substance: FERROUS SULFATE
     Indication: Product used for unknown indication
     Dosage: 324 (65
     Route: 065

REACTIONS (7)
  - Hypotension [Unknown]
  - Platelet count abnormal [Unknown]
  - Pyrexia [Unknown]
  - Gastric infection [Unknown]
  - Insomnia [Unknown]
  - Arthralgia [Unknown]
  - Diarrhoea [Unknown]
